FAERS Safety Report 9524965 (Version 4)
Quarter: 2015Q2

REPORT INFORMATION
  Report Type: Spontaneous
  Country: US (occurrence: US)
  Receive Date: 20130916
  Receipt Date: 20150514
  Transmission Date: 20150821
  Serious: Yes (Hospitalization, Other)
  Sender: FDA-Public Use
  Company Number: US-BAYER-2013-111165

PATIENT
  Age: 21 Year
  Sex: Female

DRUGS (6)
  1. PRENATAL VITAMINS [Concomitant]
     Active Substance: VITAMINS
  2. ZOFRAN [Concomitant]
     Active Substance: ONDANSETRON HYDROCHLORIDE
     Indication: NAUSEA
  3. SEDAPAP [BUTALBITAL,PARACETAMOL] [Concomitant]
  4. MIRENA [Suspect]
     Active Substance: LEVONORGESTREL
     Indication: CONTRACEPTION
     Dosage: 20 MCG/24HR, CONT
     Route: 015
     Dates: start: 20090401, end: 20120908
  5. CELEXA [Concomitant]
     Active Substance: CITALOPRAM HYDROBROMIDE
     Dosage: 40 MG, DAILY
  6. PROMETHAZINE [Concomitant]
     Active Substance: PROMETHAZINE\PROMETHAZINE HYDROCHLORIDE

REACTIONS (11)
  - Medical device pain [None]
  - Device failure [None]
  - Injury [None]
  - Drug ineffective [None]
  - Medical device discomfort [None]
  - Device issue [None]
  - Procedural pain [None]
  - Embedded device [None]
  - Pain [None]
  - Pregnancy with contraceptive device [None]
  - Scar [None]

NARRATIVE: CASE EVENT DATE: 20111221
